FAERS Safety Report 4710764-5 (Version None)
Quarter: 2005Q3

REPORT INFORMATION
  Report Type: 
  Country: None (occurrence: None)
  Receive Date: 20050707
  Receipt Date: 20050616
  Transmission Date: 20060218
  Serious: Yes (Death, Life-Threatening, Hospitalization)
  Sender: FDA-Public Use
  Company Number: GBS050417055

PATIENT
  Age: 56 Year
  Sex: Male
  Weight: 93 kg

DRUGS (4)
  1. GEMCITABINE HYDROCHLORIDE-IV (GEMCITABINE) [Suspect]
     Indication: NON-SMALL CELL LUNG CANCER
     Dosage: 7524 MG
     Dates: start: 20050228, end: 20050321
  2. CARBOPLATIN [Concomitant]
  3. DEXAMETHASONE [Concomitant]
  4. GRANISETRON [Concomitant]

REACTIONS (4)
  - CEREBRAL INFARCTION [None]
  - MYOCARDIAL INFARCTION [None]
  - SUDDEN DEATH [None]
  - VASCULITIS CEREBRAL [None]
